FAERS Safety Report 18410620 (Version 2)
Quarter: 2020Q4

REPORT INFORMATION
  Report Type: Spontaneous
  Country: US (occurrence: US)
  Receive Date: 20201021
  Receipt Date: 20201027
  Transmission Date: 20210114
  Serious: No
  Sender: FDA-Public Use
  Company Number: US-PFIZER INC-2020402571

PATIENT
  Age: 61 Year
  Sex: Female
  Weight: 66.67 kg

DRUGS (5)
  1. VITAMIN C [Concomitant]
     Active Substance: ASCORBIC ACID
     Dosage: 2 DF, DAILY[VITAMIN C EVERY DAY/TWO, EVERYDAY ]
  2. CHANTIX [Suspect]
     Active Substance: VARENICLINE TARTRATE
     Indication: SMOKING CESSATION THERAPY
     Dosage: UNK
     Dates: start: 20200905
  3. VITAMIN B [Concomitant]
     Active Substance: VITAMIN B
     Dosage: UNK, 1X/DAY[VITAMINS B ONE OF THEM A DAY ]
  4. LYSINE [Concomitant]
     Active Substance: LYSINE
     Dosage: 500 G, DAILY[I TAKE 2 LYSINE THAT^S 500GM A DAY]
  5. VITAMIN D [COLECALCIFEROL] [Concomitant]
     Active Substance: CHOLECALCIFEROL
     Dosage: 2 DF, DAILY[I TAKE 2 VITAMIN D EVERY DAY/TWO, EVERY DAY   ]

REACTIONS (2)
  - Tooth disorder [Unknown]
  - Weight fluctuation [Unknown]
